FAERS Safety Report 8095564-3 (Version None)
Quarter: 2012Q1

REPORT INFORMATION
  Report Type: 
  Country: None (occurrence: None)
  Receive Date: 20120131
  Receipt Date: 20120126
  Transmission Date: 20120608
  Serious: Yes (Hospitalization, Other)
  Sender: FDA-Public Use
  Company Number: US-PFIZER INC-2010005515

PATIENT
  Sex: Male

DRUGS (9)
  1. POTASSIUM [Concomitant]
     Indication: SUPPLEMENTATION THERAPY
     Dosage: UNK
     Dates: start: 20060627, end: 20090501
  2. IBUPROFEN [Concomitant]
     Indication: PAIN
     Dosage: UNK
     Dates: start: 20060419, end: 20091019
  3. PHENAZOPYRIDINE [Concomitant]
     Dosage: UNK
     Dates: start: 20090221, end: 20091206
  4. DOXYCYCLINE [Concomitant]
     Indication: ANTIBIOTIC THERAPY
     Dosage: UNK
     Dates: start: 20071023, end: 20091208
  5. AZITHROMYCIN [Concomitant]
     Indication: ANTIBIOTIC THERAPY
     Dosage: UNK
     Dates: start: 20080320, end: 20091026
  6. CHANTIX [Suspect]
     Indication: SMOKING CESSATION THERAPY
     Dosage: 1 MG, UNK
     Dates: start: 20090325, end: 20090501
  7. COREG [Concomitant]
     Indication: CARDIAC DISORDER
     Dosage: UNK
     Dates: start: 20030101
  8. LASIX [Concomitant]
     Indication: CARDIAC DISORDER
     Dosage: UNK
     Dates: start: 20050411, end: 20090501
  9. LISINOPRIL [Concomitant]
     Indication: CARDIAC DISORDER
     Dosage: UNK
     Dates: start: 20030101

REACTIONS (4)
  - ABNORMAL BEHAVIOUR [None]
  - HYPOACUSIS [None]
  - SUICIDE ATTEMPT [None]
  - DEPRESSION [None]
